FAERS Safety Report 5213361-0 (Version None)
Quarter: 2007Q1

REPORT INFORMATION
  Report Type: 
  Country: None (occurrence: None)
  Receive Date: 20070119
  Receipt Date: 20060802
  Transmission Date: 20070707
  Serious: No
  Sender: FDA-Public Use
  Company Number: US-GLAXOSMITHKLINE-A0615401A

PATIENT
  Age: 1 Year
  Sex: Female

DRUGS (2)
  1. ARIXTRA [Suspect]
     Dosage: 2.5MG PER DAY
     Dates: start: 20060619, end: 20060702
  2. PRENATAL VITAMINS [Concomitant]

REACTIONS (1)
  - DRUG EXPOSURE VIA BREAST MILK [None]
